FAERS Safety Report 25747779 (Version 1)
Quarter: 2025Q3

REPORT INFORMATION
  Report Type: Spontaneous
  Country: US (occurrence: US)
  Receive Date: 20250901
  Receipt Date: 20250901
  Transmission Date: 20251021
  Serious: Yes (Hospitalization)
  Sender: ELI LILLY AND COMPANY
  Company Number: US-ELI_LILLY_AND_COMPANY-US202508028607

PATIENT
  Age: 83 Year
  Sex: Male

DRUGS (1)
  1. VERZENIO [Suspect]
     Active Substance: ABEMACICLIB
     Indication: Malignant connective tissue neoplasm
     Dosage: 100 MG, BID
     Route: 048

REACTIONS (2)
  - Pancreatitis [Unknown]
  - Off label use [Unknown]
